FAERS Safety Report 9122031 (Version 1)
Quarter: 2013Q1

REPORT INFORMATION
  Report Type: Spontaneous
  Country: CA (occurrence: CA)
  Receive Date: 20130114
  Receipt Date: 20130114
  Transmission Date: 20140127
  Serious: Yes (Death)
  Sender: FDA-Public Use
  Company Number: PHHY2013CA002875

PATIENT
  Sex: Female

DRUGS (4)
  1. ACLASTA [Suspect]
     Indication: OSTEOPOROSIS
     Dosage: UNK
     Route: 042
     Dates: start: 20090220
  2. ACLASTA [Suspect]
     Dosage: UNK
     Route: 042
     Dates: start: 20100210
  3. ACLASTA [Suspect]
     Dosage: UNK
     Route: 042
     Dates: start: 20110214
  4. ACLASTA [Suspect]
     Dosage: UNK
     Route: 042
     Dates: start: 20120220

REACTIONS (1)
  - Neoplasm malignant [Fatal]
